FAERS Safety Report 6305400-0 (Version None)
Quarter: 2009Q3

REPORT INFORMATION
  Report Type: 
  Country: None (occurrence: None)
  Receive Date: 20090807
  Receipt Date: 20090724
  Transmission Date: 20100115
  Serious: Yes (Hospitalization, Other)
  Sender: FDA-Public Use
  Company Number: 20090325

PATIENT
  Age: 36 Year
  Sex: Female

DRUGS (7)
  1. VENOFER [Suspect]
     Dosage: 300 MG. INTRAVENOUS
     Route: 042
     Dates: start: 20090710, end: 20090712
  2. PARACETAMOL [Concomitant]
  3. KETOPROFEN [Concomitant]
  4. NALBUPHINE [Concomitant]
  5. ESOMEPRAZOLE [Concomitant]
  6. ENOXAPARIN SODIUM [Concomitant]
  7. TARDYFERON [Concomitant]

REACTIONS (1)
  - THROMBOPHLEBITIS SUPERFICIAL [None]
